FAERS Safety Report 9260145 (Version 2)
Quarter: 2013Q3

REPORT INFORMATION
  Report Type: Spontaneous
  Country: US (occurrence: US)
  Receive Date: 20130429
  Receipt Date: 20130703
  Transmission Date: 20140515
  Serious: Yes (Hospitalization, Disabling, Other)
  Sender: FDA-Public Use
  Company Number: US-ASTRAZENECA-2013SE27710

PATIENT
  Age: 58 Year
  Sex: Female
  Weight: 83.9 kg

DRUGS (18)
  1. NEXIUM [Suspect]
     Indication: GASTROOESOPHAGEAL REFLUX DISEASE
     Route: 048
     Dates: start: 2005, end: 2011
  2. NEXIUM [Suspect]
     Indication: GASTROOESOPHAGEAL REFLUX DISEASE
     Route: 048
     Dates: start: 20070711
  3. PRILOSEC [Suspect]
     Route: 048
  4. PRILOSEC [Suspect]
     Dosage: GENERIC
     Route: 048
     Dates: start: 20030707
  5. PROTONIX [Concomitant]
  6. ZANTAC [Concomitant]
  7. PEPCID [Concomitant]
  8. TUMS [Concomitant]
  9. MYLANTA [Concomitant]
  10. PEPTOBISMOL [Concomitant]
  11. ROLAIDS [Concomitant]
  12. MILK OF MAGNESIA [Concomitant]
  13. MONOPRIL [Concomitant]
  14. ESTROGEN [Concomitant]
     Route: 048
  15. FLUOXETINE [Concomitant]
     Route: 048
  16. CLONAZEPAM [Concomitant]
     Route: 048
  17. COLACE [Concomitant]
  18. PROZAC [Concomitant]

REACTIONS (15)
  - Fibula fracture [Unknown]
  - Ankle fracture [Unknown]
  - Cerebrovascular accident [Unknown]
  - Anxiety [Unknown]
  - Ankle fracture [Unknown]
  - Convulsion [Unknown]
  - Depression [Unknown]
  - Bone disorder [Unknown]
  - Multiple fractures [Unknown]
  - Osteoporosis [Unknown]
  - Calcium deficiency [Unknown]
  - Arthritis [Unknown]
  - Glaucoma [Unknown]
  - Rheumatoid arthritis [Unknown]
  - Hypertension [Unknown]
